FAERS Safety Report 7049549-6 (Version None)
Quarter: 2010Q4

REPORT INFORMATION
  Report Type: 
  Country: None (occurrence: None)
  Receive Date: 20101018
  Receipt Date: 20101008
  Transmission Date: 20110411
  Serious: Yes (Other)
  Sender: FDA-Public Use
  Company Number: B0679802A

PATIENT
  Sex: Female

DRUGS (1)
  1. ORLISTAT [Suspect]
     Indication: PRODUCT USED FOR UNKNOWN INDICATION

REACTIONS (4)
  - ABDOMINAL PAIN [None]
  - GASTROINTESTINAL DISORDER [None]
  - HAEMATOCHEZIA [None]
  - NAUSEA [None]
